FAERS Safety Report 16628934 (Version 6)
Quarter: 2020Q1

REPORT INFORMATION
  Report Type: Spontaneous
  Country: US (occurrence: US)
  Receive Date: 20190725
  Receipt Date: 20200303
  Transmission Date: 20200409
  Serious: Yes (Other)
  Sender: FDA-Public Use
  Company Number: US-PFIZER INC-2017179719

PATIENT
  Age: 72 Year
  Sex: Female
  Weight: 91 kg

DRUGS (14)
  1. LYRICA [Suspect]
     Active Substance: PREGABALIN
     Indication: POLYNEUROPATHY
  2. LYRICA [Suspect]
     Active Substance: PREGABALIN
     Indication: PAIN IN EXTREMITY
  3. PROAIR HFA [Concomitant]
     Active Substance: ALBUTEROL SULFATE
     Dosage: UNK, (200)
     Route: 055
  4. VIT D [Concomitant]
     Active Substance: VITAMIN D NOS
     Dosage: 50000 IU, UNK
  5. VITAMIN D2 [Concomitant]
     Active Substance: ERGOCALCIFEROL
     Dosage: UNK
  6. ALBUTEROL. [Concomitant]
     Active Substance: ALBUTEROL
     Dosage: 0.083 %, UNK
  7. LYRICA [Suspect]
     Active Substance: PREGABALIN
     Indication: MONONEURITIS
     Dosage: 150 MG, 2X/DAY, [1 CAPSULE IN THE MORNING AND 1 CAPSULE AT NIGHT]
     Route: 048
  8. LYRICA [Suspect]
     Active Substance: PREGABALIN
     Indication: NEUROPATHY PERIPHERAL
  9. HYDROCODONE/ACETAMINOPHEN [Concomitant]
     Active Substance: ACETAMINOPHEN\HYDROCODONE
     Dosage: UNK
  10. LYRICA [Suspect]
     Active Substance: PREGABALIN
     Indication: MONONEUROPATHY
     Dosage: 150 MG, 2X/DAY (SIG: 1 (ONE) CAPSULE BY MOUTH TWO TIMES DAILY)
     Route: 048
  11. MELOXICAM. [Concomitant]
     Active Substance: MELOXICAM
     Dosage: 15 MG, UNK
  12. ADVAIR DISKUS [Concomitant]
     Active Substance: FLUTICASONE PROPIONATE\SALMETEROL XINAFOATE
     Dosage: UNK, [FLUTICASONE PROPIONATE 500 MCG] / [SALMETEROL XINAFOATE 50 MCG]
  13. TRAZODONE [Concomitant]
     Active Substance: TRAZODONE HYDROCHLORIDE
     Dosage: 50 MG, UNK
  14. LEVOTHYROXINE. [Concomitant]
     Active Substance: LEVOTHYROXINE
     Dosage: 0.15 MG, UNK

REACTIONS (2)
  - Blood pressure abnormal [Unknown]
  - Cerebrovascular accident [Unknown]
